FAERS Safety Report 4768062-X (Version None)
Quarter: 2005Q3

REPORT INFORMATION
  Report Type: 
  Country: None (occurrence: None)
  Receive Date: 20050906
  Receipt Date: 20050506
  Transmission Date: 20060218
  Serious: No
  Sender: FDA-Public Use
  Company Number: 2005-BP-07624BP

PATIENT
  Age: 79 Year
  Sex: Male
  Weight: 70.9 kg

DRUGS (8)
  1. SPIRIVA [Suspect]
     Indication: CHRONIC OBSTRUCTIVE PULMONARY DISEASE
     Dosage: 18 MCG (18 MCG, QD) IH
     Route: 055
     Dates: start: 20040624, end: 20050501
  2. SPIRIVA [Suspect]
     Indication: EMPHYSEMA
     Dosage: 18 MCG (18 MCG, QD) IH
     Route: 055
     Dates: start: 20040624, end: 20050501
  3. SPIRIVA [Suspect]
     Indication: EXPOSURE TO CHEMICAL POLLUTION
     Dosage: 18 MCG (18 MCG, QD) IH
     Route: 055
     Dates: start: 20040624, end: 20050501
  4. FLOVENT [Concomitant]
  5. LEVOXYL [Concomitant]
  6. ATENOLOL [Concomitant]
  7. PAXIL [Concomitant]
  8. ALBUTEROL [Concomitant]

REACTIONS (4)
  - CHEST DISCOMFORT [None]
  - DRY MOUTH [None]
  - OESOPHAGEAL DISORDER [None]
  - ORAL CANDIDIASIS [None]
